FAERS Safety Report 10504547 (Version 1)
Quarter: 2014Q4

REPORT INFORMATION
  Report Type: Spontaneous
  Country: GB (occurrence: None)
  Receive Date: 20141006
  Receipt Date: 20141006
  Transmission Date: 20150528
  Serious: Yes (Hospitalization)
  Sender: FDA-Public Use
  Company Number: GB-H14001-14-00903

PATIENT
  Age: 69 Year
  Sex: Female

DRUGS (2)
  1. CO-AMOXICLAV [Suspect]
     Active Substance: AMOXICILLIN\CLAVULANIC ACID
     Indication: SEPSIS
     Dosage: (625 MG, 500 MG/125
     Route: 048
     Dates: start: 201409, end: 201409
  2. CIPROFLOXACIN (CIPROFLOXACIN) (UNKNOWN) (CIPROFLOXACIN) [Suspect]
     Active Substance: CIPROFLOXACIN
     Indication: SEPSIS
     Dosage: (500 MG, 2 IN 1 D), ORAL
     Route: 048
     Dates: start: 201409, end: 201409

REACTIONS (3)
  - Cutaneous lupus erythematosus [None]
  - Rash maculo-papular [None]
  - Neutropenia [None]

NARRATIVE: CASE EVENT DATE: 20140906
